FAERS Safety Report 5678762-5 (Version None)
Quarter: 2008Q1

REPORT INFORMATION
  Report Type: 
  Country: None (occurrence: None)
  Receive Date: 20080324
  Receipt Date: 20080324
  Transmission Date: 20080703
  Serious: Yes (Other)
  Sender: FDA-Public Use
  Company Number: None

PATIENT
  Age: 36 Year
  Sex: Male
  Weight: 82.1011 kg

DRUGS (2)
  1. CYMBALTA [Suspect]
     Dates: start: 20070905, end: 20080321
  2. SONATA [Suspect]
     Dates: start: 20070905, end: 20080321

REACTIONS (2)
  - HIGH DENSITY LIPOPROTEIN INCREASED [None]
  - LIPIDS ABNORMAL [None]
